FAERS Safety Report 8006368-1 (Version None)
Quarter: 2011Q4

REPORT INFORMATION
  Report Type: 
  Country: None (occurrence: None)
  Receive Date: 20111226
  Receipt Date: 20111215
  Transmission Date: 20120403
  Serious: Yes (Hospitalization, Other)
  Sender: FDA-Public Use
  Company Number: PHHY2011BR109793

PATIENT
  Age: 16 Year
  Sex: Female

DRUGS (1)
  1. METHERGINE [Suspect]
     Dosage: 1 COATED TABLETS EVERY 8 HOURS

REACTIONS (2)
  - VAGINAL HAEMORRHAGE [None]
  - ABDOMINAL PAIN [None]
